FAERS Safety Report 13341038 (Version 1)
Quarter: 2017Q1

REPORT INFORMATION
  Report Type: Spontaneous
  Country: US (occurrence: US)
  Receive Date: 20170316
  Receipt Date: 20170316
  Transmission Date: 20170428
  Serious: No
  Sender: FDA-Public Use
  Company Number: US-ENDO PHARMACEUTICALS INC-2016-002718

PATIENT
  Sex: Male
  Weight: 95.34 kg

DRUGS (5)
  1. COUMADIN [Concomitant]
     Active Substance: WARFARIN SODIUM
     Indication: COAGULOPATHY
  2. XIAFLEX [Suspect]
     Active Substance: COLLAGENASE CLOSTRIDIUM HISTOLYTICUM
     Indication: DUPUYTREN^S CONTRACTURE
     Dosage: RECEIVED 3 OR 4 INJECTIONS ON RIGHT HAND
     Route: 065
     Dates: start: 2013
  3. XIAFLEX [Suspect]
     Active Substance: COLLAGENASE CLOSTRIDIUM HISTOLYTICUM
     Dosage: RECEIVED 3 OR 4 INJECTIONS ON RIGHT HAND
     Route: 065
     Dates: start: 2012
  4. WARFARIN [Concomitant]
     Active Substance: WARFARIN
     Indication: COAGULOPATHY
  5. LOVENOX [Concomitant]
     Active Substance: ENOXAPARIN SODIUM
     Indication: COAGULOPATHY

REACTIONS (2)
  - Disease progression [Unknown]
  - Pain [Unknown]
